FAERS Safety Report 7629165 (Version 3)
Quarter: 2013Q2

REPORT INFORMATION
  Report Type: Report from Study
  Country: MX (occurrence: MX)
  Receive Date: 20101014
  Receipt Date: 20130531
  Transmission Date: 20140414
  Serious: Yes (Hospitalization, Other)
  Sender: FDA-Public Use
  Company Number: PHHY2010MX66764

PATIENT
  Age: 72 Year
  Sex: Male

DRUGS (1)
  1. RASILEZ [Suspect]
     Indication: HYPERTENSION
     Dosage: 1 DF, QD (300 MG)
     Dates: start: 20100601, end: 20101001

REACTIONS (4)
  - Infection [Recovered/Resolved]
  - Device related infection [Recovered/Resolved]
  - Blood pressure increased [Recovered/Resolved]
  - Blood pressure inadequately controlled [Unknown]
